FAERS Safety Report 6520533-1 (Version None)
Quarter: 2009Q4

REPORT INFORMATION
  Report Type: 
  Country: None (occurrence: None)
  Receive Date: 20091229
  Receipt Date: 20091221
  Transmission Date: 20100525
  Serious: Yes (Hospitalization)
  Sender: FDA-Public Use
  Company Number: B0621305A

PATIENT
  Sex: Female

DRUGS (1)
  1. ZINNAT [Suspect]
     Indication: ALLERGY TEST
     Dosage: 500MG TWICE PER DAY
     Route: 048
     Dates: start: 20090902

REACTIONS (5)
  - ANGIOEDEMA [None]
  - DIZZINESS [None]
  - FATIGUE [None]
  - PRURITUS [None]
  - VISION BLURRED [None]
